FAERS Safety Report 12820590 (Version 1)
Quarter: 2016Q4

REPORT INFORMATION
  Report Type: Spontaneous
  Country: US (occurrence: US)
  Receive Date: 20161006
  Receipt Date: 20161006
  Transmission Date: 20170207
  Serious: No
  Sender: FDA-Public Use
  Company Number: US-ASTRAZENECA-2016SE95602

PATIENT
  Sex: Male

DRUGS (2)
  1. GLIMEPIRIDE. [Concomitant]
     Active Substance: GLIMEPIRIDE
  2. FARXIGA [Suspect]
     Active Substance: DAPAGLIFLOZIN PROPANEDIOL
     Route: 048

REACTIONS (1)
  - Pain in extremity [Recovered/Resolved]
